FAERS Safety Report 5199826-9 (Version None)
Quarter: 2006Q4

REPORT INFORMATION
  Report Type: 
  Country: None (occurrence: None)
  Receive Date: 20061229
  Receipt Date: 20061217
  Transmission Date: 20070319
  Serious: Yes (Hospitalization)
  Sender: FDA-Public Use
  Company Number: 2006-03064

PATIENT
  Sex: Male

DRUGS (1)
  1. VELCADE [Suspect]
     Indication: DRUG USE FOR UNKNOWN INDICATION

REACTIONS (6)
  - BLOOD IMMUNOGLOBULIN G INCREASED [None]
  - GENERAL PHYSICAL HEALTH DETERIORATION [None]
  - HYPOXIA [None]
  - LUNG INFILTRATION [None]
  - MULTIPLE MYELOMA [None]
  - NASOPHARYNGITIS [None]
